FAERS Safety Report 15974132 (Version 1)
Quarter: 2019Q1

REPORT INFORMATION
  Report Type: Spontaneous
  Country: FR (occurrence: FR)
  Receive Date: 20190218
  Receipt Date: 20190218
  Transmission Date: 20190418
  Serious: Yes (Hospitalization)
  Sender: FDA-Public Use
  Company Number: FR-SUN PHARMACEUTICAL INDUSTRIES LTD-2019RR-199250

PATIENT
  Age: 22 Year
  Sex: Female
  Weight: 62 kg

DRUGS (3)
  1. DAFALGAN CODEINE [Suspect]
     Active Substance: ACETAMINOPHEN\CODEINE PHOSPHATE
     Indication: POISONING DELIBERATE
     Dosage: ()
     Route: 048
     Dates: start: 20180628, end: 20180628
  2. PARACETAMOL [Suspect]
     Active Substance: ACETAMINOPHEN
     Indication: POISONING DELIBERATE
     Dosage: ()
     Route: 048
     Dates: start: 20180628, end: 20180628
  3. TRAMADOL. [Suspect]
     Active Substance: TRAMADOL
     Indication: POISONING DELIBERATE
     Dosage: ()
     Route: 048
     Dates: start: 20180628, end: 20180628

REACTIONS (3)
  - Vomiting [Recovered/Resolved]
  - Miosis [Recovered/Resolved]
  - Somnolence [Recovered/Resolved]

NARRATIVE: CASE EVENT DATE: 20180628
